FAERS Safety Report 24184337 (Version 1)
Quarter: 2024Q3

REPORT INFORMATION
  Report Type: Spontaneous
  Country: US (occurrence: None)
  Receive Date: 20240807
  Receipt Date: 20240807
  Transmission Date: 20241017
  Serious: Yes (Hospitalization)
  Sender: Public
  Company Number: None

PATIENT
  Age: 48 Year
  Sex: Female
  Weight: 86.3 kg

DRUGS (2)
  1. CARBOPLATIN [Suspect]
     Active Substance: CARBOPLATIN
     Dates: start: 20240409, end: 20240709
  2. TAXOTERE [Concomitant]
     Active Substance: DOCETAXEL
     Dates: end: 20240709

REACTIONS (5)
  - Suicidal ideation [None]
  - Generalised anxiety disorder [None]
  - Depression [None]
  - Delirium [None]
  - Acute kidney injury [None]

NARRATIVE: CASE EVENT DATE: 20240722
